FAERS Safety Report 8030979 (Version 2)
Quarter: 2013Q1

REPORT INFORMATION
  Report Type: Spontaneous
  Country: US (occurrence: US)
  Receive Date: 20110712
  Receipt Date: 20130116
  Transmission Date: 20140127
  Serious: Yes (Hospitalization)
  Sender: FDA-Public Use
  Company Number: US-GLAXOSMITHKLINE-A0910485A

PATIENT
  Age: 74 Year
  Sex: Male

DRUGS (1)
  1. AVANDIA [Suspect]
     Indication: DIABETES MELLITUS
     Dosage: 4MG TWICE PER DAY
     Route: 048
     Dates: start: 2001, end: 201005

REACTIONS (7)
  - Myocardial infarction [Not Recovered/Not Resolved]
  - Cardiac disorder [Unknown]
  - Asthenia [Unknown]
  - Dyspnoea [Unknown]
  - Chest pain [Unknown]
  - Coronary arterial stent insertion [Unknown]
  - Cardiac failure congestive [Unknown]
